FAERS Safety Report 9217043 (Version 1)
Quarter: 2013Q2

REPORT INFORMATION
  Report Type: Spontaneous
  Country: RU (occurrence: RU)
  Receive Date: 20130408
  Receipt Date: 20130408
  Transmission Date: 20140414
  Serious: Yes (Other)
  Sender: FDA-Public Use
  Company Number: RU-BAYER-2013-037993

PATIENT
  Sex: Male
  Weight: 1.19 kg

DRUGS (1)
  1. YAZ [Suspect]
     Dosage: UNK
     Route: 064

REACTIONS (3)
  - Premature baby [None]
  - Low birth weight baby [None]
  - Exposure during pregnancy [None]
